FAERS Safety Report 8601394-3 (Version None)
Quarter: 2012Q3

REPORT INFORMATION
  Report Type: 
  Country: None (occurrence: None)
  Receive Date: 20120817
  Receipt Date: 20120813
  Transmission Date: 20120928
  Serious: Yes (Other)
  Sender: FDA-Public Use
  Company Number: BR-PFIZER INC-2012198145

PATIENT
  Age: 41 Year
  Sex: Male
  Weight: 71 kg

DRUGS (6)
  1. FERROUS SULFATE [Concomitant]
     Dosage: 1 DAILY, EACH 3 MONTHS
     Dates: start: 20010101
  2. CORUS [Concomitant]
     Indication: HYPERTENSION
     Dosage: UNK, 2X/DAY
     Dates: start: 20080101
  3. RAPAMUNE [Suspect]
     Indication: PROPHYLAXIS AGAINST TRANSPLANT REJECTION
     Dosage: STRENGTH 2 MG, UNK
     Route: 048
     Dates: start: 20010101
  4. PREDNISONE [Concomitant]
     Indication: RENAL DISORDER
     Dosage: UNK
     Dates: start: 20010101
  5. ANGIOPRIL [Concomitant]
     Indication: HYPERTENSION
     Dosage: UNK, 2X/DAY
  6. MYFORTIC [Concomitant]
     Indication: PROPHYLAXIS AGAINST TRANSPLANT REJECTION
     Dosage: 360 MG, (2 TABLETS 12 / 12 HOURS) 2X/DAY
     Dates: start: 20010101

REACTIONS (4)
  - FLATULENCE [None]
  - WEIGHT DECREASED [None]
  - EXPIRED DRUG ADMINISTERED [None]
  - DIARRHOEA [None]
